FAERS Safety Report 8476048-7 (Version None)
Quarter: 2012Q2

REPORT INFORMATION
  Report Type: 
  Country: None (occurrence: None)
  Receive Date: 20120628
  Receipt Date: 20120621
  Transmission Date: 20120825
  Serious: Yes (Other)
  Sender: FDA-Public Use
  Company Number: GB-ROCHE-1080600

PATIENT
  Sex: Female
  Weight: 48 kg

DRUGS (2)
  1. MABTHERA [Suspect]
     Dates: start: 20110616
  2. MABTHERA [Suspect]
     Indication: PRODUCT USED FOR UNKNOWN INDICATION
     Dates: start: 20110601

REACTIONS (1)
  - SKIN ULCER [None]
